FAERS Safety Report 7318956-6 (Version None)
Quarter: 2011Q1

REPORT INFORMATION
  Report Type: 
  Country: None (occurrence: None)
  Receive Date: 20110228
  Receipt Date: 20110216
  Transmission Date: 20110831
  Serious: Yes (Other)
  Sender: FDA-Public Use
  Company Number: JP-JNJFOC-20110206881

PATIENT
  Sex: Male

DRUGS (15)
  1. RISPERDAL [Suspect]
     Indication: SCHIZOPHRENIA
     Route: 048
  2. LONASEN [Suspect]
     Indication: SCHIZOPHRENIA
     Route: 048
  3. NEULEPTIL [Suspect]
     Indication: PRODUCT USED FOR UNKNOWN INDICATION
     Route: 048
  4. LEMONAMIN [Suspect]
     Route: 048
  5. AKIRIDEN [Concomitant]
     Route: 048
  6. LONASEN [Suspect]
     Route: 048
  7. VALPROIC ACID [Suspect]
     Indication: PRODUCT USED FOR UNKNOWN INDICATION
     Route: 048
  8. LEMONAMIN [Suspect]
     Indication: SCHIZOPHRENIA
     Route: 048
  9. TREMIN [Concomitant]
     Indication: SCHIZOPHRENIA
     Route: 048
  10. LEMONAMIN [Suspect]
     Route: 048
  11. AKIRIDEN [Concomitant]
     Indication: SCHIZOPHRENIA
     Route: 048
  12. HALOMONTH [Suspect]
     Indication: SCHIZOPHRENIA
     Route: 030
  13. LEMONAMIN [Suspect]
     Route: 048
  14. TREMIN [Concomitant]
     Route: 048
  15. CARBAMAZEPINE [Suspect]
     Indication: SCHIZOPHRENIA
     Route: 048

REACTIONS (6)
  - INTENTIONAL SELF-INJURY [None]
  - TREATMENT NONCOMPLIANCE [None]
  - VOMITING [None]
  - HYPONATRAEMIA [None]
  - RHABDOMYOLYSIS [None]
  - POLYDIPSIA [None]
